FAERS Safety Report 16731229 (Version 1)
Quarter: 2019Q3

REPORT INFORMATION
  Report Type: Spontaneous
  Country: US (occurrence: US)
  Receive Date: 20190706
  Receipt Date: 20190706
  Transmission Date: 20191005
  Serious: Yes (Hospitalization)
  Sender: FDA-Public Use
  Company Number: None

PATIENT
  Age: 34 Year
  Sex: Female
  Weight: 69.6 kg

DRUGS (6)
  1. ETOPOSIDE (VP-16) [Suspect]
     Active Substance: ETOPOSIDE
     Dates: end: 20041010
  2. MITOXANTRONE HYDROCHLORIDE. [Suspect]
     Active Substance: MITOXANTRONE HYDROCHLORIDE
     Dates: end: 20041109
  3. CYTARABINE. [Suspect]
     Active Substance: CYTARABINE
     Dates: end: 20050119
  4. MYLOTARG [Suspect]
     Active Substance: GEMTUZUMAB OZOGAMICIN
     Dates: end: 20041110
  5. L-ASPARAGINASE [Suspect]
     Active Substance: ASPARAGINASE
     Dates: end: 20051118
  6. DAUNORUBICIN [Suspect]
     Active Substance: DAUNORUBICIN
     Dates: end: 20040831

REACTIONS (3)
  - Papillary thyroid cancer [None]
  - Stem cell transplant [None]
  - Acute myeloid leukaemia recurrent [None]

NARRATIVE: CASE EVENT DATE: 20190617
